FAERS Safety Report 5388067-8 (Version None)
Quarter: 2007Q3

REPORT INFORMATION
  Report Type: 
  Country: None (occurrence: None)
  Receive Date: 20070716
  Receipt Date: 20070705
  Transmission Date: 20080115
  Serious: Yes (Life-Threatening, Hospitalization, Disabling)
  Sender: FDA-Public Use
  Company Number: GB-ROCHE-506015

PATIENT
  Age: 47 Year
  Sex: Male

DRUGS (5)
  1. NAPROXEN [Suspect]
     Indication: DRUG USE FOR UNKNOWN INDICATION
     Route: 048
     Dates: start: 20061001, end: 20070101
  2. BUPRENORPHINE HCL [Concomitant]
     Dosage: TRADE NAME REPORTED AS BUTRANS
     Dates: start: 20061201
  3. NORTRIPTYLINE HCL [Concomitant]
     Dates: start: 20060601
  4. PREGABALIN [Concomitant]
     Dates: start: 20050901
  5. TRAMADOL HCL [Concomitant]
     Dates: start: 20030101

REACTIONS (4)
  - COLITIS ISCHAEMIC [None]
  - LARGE INTESTINE PERFORATION [None]
  - PERITONITIS [None]
  - SEPSIS [None]
